APPROVED DRUG PRODUCT: PANTOPRAZOLE SODIUM
Active Ingredient: PANTOPRAZOLE SODIUM
Strength: EQ 40MG BASE/VIAL
Dosage Form/Route: INJECTABLE;INTRAVENOUS
Application: A209524 | Product #001 | TE Code: AP
Applicant: HANGZHOU ZHONGMEI HUADONG PHARMACEUTICAL CO LTD
Approved: Aug 30, 2021 | RLD: No | RS: No | Type: RX